FAERS Safety Report 9728226 (Version 1)
Quarter: 2013Q4

REPORT INFORMATION
  Report Type: Spontaneous
  Country: US (occurrence: None)
  Receive Date: 20131202
  Receipt Date: 20131202
  Transmission Date: 20140711
  Serious: Yes (Other)
  Sender: FDA-Public Use
  Company Number: 20130687

PATIENT
  Age: 56 Year
  Sex: Female
  Weight: 77 kg

DRUGS (1)
  1. DOPAMINE HCL [Suspect]
     Dosage: 172 UG/KG/MIN, INTRAVENOUS DRIP
     Route: 041

REACTIONS (1)
  - Hypotension [None]
